FAERS Safety Report 20049652 (Version 1)
Quarter: 2021Q4

REPORT INFORMATION
  Report Type: Spontaneous
  Country: US (occurrence: None)
  Receive Date: 20211109
  Receipt Date: 20211109
  Transmission Date: 20220303
  Serious: Yes (Life-Threatening, Hospitalization, Disabling)
  Sender: FDA-Public Use
  Company Number: None

PATIENT
  Age: 80 Year
  Sex: Female
  Weight: 83.9 kg

DRUGS (16)
  1. ELIQUIS [Suspect]
     Active Substance: APIXABAN
     Indication: Atrial fibrillation
     Dosage: FREQUENCY : TWICE A DAY;?
     Route: 048
     Dates: start: 20210910, end: 20211026
  2. Acetaminophen 325 mg tablet [Concomitant]
  3. ALBUTEROL [Concomitant]
     Active Substance: ALBUTEROL
  4. ATORVASTATIN [Concomitant]
     Active Substance: ATORVASTATIN
  5. Azelastine 0.1% nasal spray [Concomitant]
  6. Budesonide 0.5mg/2mL nebulizer [Concomitant]
  7. CALCIUM CARBONATE [Concomitant]
     Active Substance: CALCIUM CARBONATE
  8. CARVEDILOL [Concomitant]
     Active Substance: CARVEDILOL
  9. CHOLECALCIFEROL [Concomitant]
     Active Substance: CHOLECALCIFEROL
  10. DICLOFENAC [Concomitant]
     Active Substance: DICLOFENAC
  11. GABAPENTIN [Concomitant]
     Active Substance: GABAPENTIN
  12. HYDROCHLOROTHIAZIDE [Concomitant]
     Active Substance: HYDROCHLOROTHIAZIDE
  13. Hydrocodone 5 mg - Acetaminophen 325 mg [Concomitant]
  14. METHYLPREDNISOLONE [Concomitant]
     Active Substance: METHYLPREDNISOLONE
  15. PREGABALIN [Concomitant]
     Active Substance: PREGABALIN
  16. NITROGLYCERIN [Concomitant]
     Active Substance: NITROGLYCERIN

REACTIONS (3)
  - Unresponsive to stimuli [None]
  - Haemorrhagic stroke [None]
  - Seizure [None]

NARRATIVE: CASE EVENT DATE: 20211026
